FAERS Safety Report 23853668 (Version 1)
Quarter: 2024Q2

REPORT INFORMATION
  Report Type: Spontaneous
  Country: RU (occurrence: RU)
  Receive Date: 20240514
  Receipt Date: 20240514
  Transmission Date: 20240716
  Serious: Yes (Hospitalization)
  Sender: FDA-Public Use
  Company Number: RU-002147023-NVSC2024RU100934

PATIENT
  Age: 17 Year
  Sex: Male

DRUGS (4)
  1. TRILEPTAL [Suspect]
     Active Substance: OXCARBAZEPINE
     Indication: Suicide attempt
     Dosage: 7 DOSAGE FORM (7 TABLET)
     Route: 048
     Dates: start: 20240425, end: 20240425
  2. ACETAMINOPHEN [Concomitant]
     Active Substance: ACETAMINOPHEN
     Indication: Suicide attempt
     Dosage: 10 DOSAGE FORM (10 TABLET)
     Route: 048
     Dates: start: 20240425, end: 20240425
  3. IBUCLIN [Concomitant]
     Indication: Suicide attempt
     Dosage: 7 DOSAGE FORM (7 TABLET)
     Route: 048
     Dates: start: 20240425, end: 20240425
  4. IBUPROFEN [Concomitant]
     Active Substance: IBUPROFEN
     Indication: Suicide attempt
     Dosage: 10 DOSAGE FORM (10 TABLET)
     Route: 048
     Dates: start: 20240425, end: 20240425

REACTIONS (1)
  - Psychomotor retardation [Recovering/Resolving]

NARRATIVE: CASE EVENT DATE: 20240425
